FAERS Safety Report 7817023-2 (Version None)
Quarter: 2011Q4

REPORT INFORMATION
  Report Type: 
  Country: None (occurrence: None)
  Receive Date: 20111017
  Receipt Date: 20111003
  Transmission Date: 20120403
  Serious: Yes (Hospitalization, Other)
  Sender: FDA-Public Use
  Company Number: AT-ELI_LILLY_AND_COMPANY-AT201110000824

PATIENT
  Age: 39 Year
  Sex: Male

DRUGS (7)
  1. ZOLPIDEM TARTRATE [Concomitant]
     Dosage: 10 MG, UNK
     Dates: start: 20110519
  2. SEROQUEL [Concomitant]
     Dosage: 250 MG, UNK
     Dates: start: 20110519, end: 20110101
  3. SEROQUEL [Concomitant]
     Dosage: UNK
     Dates: start: 20110101
  4. FLUOXETINE HYDROCHLORIDE [Suspect]
     Dosage: 20 MG, UNK
     Dates: start: 20110519, end: 20110101
  5. SEROQUEL [Concomitant]
     Dosage: 200 MG, UNK
     Dates: start: 20110101, end: 20110101
  6. FLUOXETINE HYDROCHLORIDE [Suspect]
     Dosage: UNK, UNKNOWN
     Dates: start: 20110101, end: 20110623
  7. TRAZODONE HCL [Concomitant]
     Indication: DEPRESSION
     Dosage: 150 MG, UNK
     Dates: start: 20110519, end: 20110610

REACTIONS (4)
  - THROMBOCYTOPENIA [None]
  - LEUKOPENIA [None]
  - HOSPITALISATION [None]
  - HIV INFECTION [None]
